FAERS Safety Report 7727618-2 (Version None)
Quarter: 2011Q3

REPORT INFORMATION
  Report Type: 
  Country: None (occurrence: None)
  Receive Date: 20110902
  Receipt Date: 20110826
  Transmission Date: 20111222
  Serious: Yes (Life-Threatening, Hospitalization)
  Sender: FDA-Public Use
  Company Number: PHHY2011NL76681

PATIENT
  Sex: Female

DRUGS (2)
  1. ZOMETA [Suspect]
     Dosage: UNK UKN, UNK
     Dates: start: 20100831
  2. ZOLEDRONOC ACID [Suspect]
     Dosage: 5 MG/100ML
     Route: 042
     Dates: start: 20100831

REACTIONS (3)
  - GENERAL PHYSICAL CONDITION ABNORMAL [None]
  - RENAL FAILURE [None]
  - DRUG ADMINISTRATION ERROR [None]
